FAERS Safety Report 10163505 (Version 3)
Quarter: 2014Q3

REPORT INFORMATION
  Report Type: Report from Study
  Country: DE (occurrence: DE)
  Receive Date: 20140509
  Receipt Date: 20140818
  Transmission Date: 20150326
  Serious: Yes (Hospitalization, Other)
  Sender: FDA-Public Use
  Company Number: DE-CELGENEUS-062-10004-13044386

PATIENT
  Age: 72 Year
  Sex: Male
  Weight: 81 kg

DRUGS (7)
  1. CC-10004 [Suspect]
     Active Substance: APREMILAST
     Indication: PSORIASIS
     Dosage: 60 MILLIGRAM
     Route: 048
     Dates: start: 20110525, end: 20130425
  2. METOPROLOL [Concomitant]
     Active Substance: METOPROLOL
     Indication: HYPERTENSION
     Dosage: 11.8 MILLIGRAM
     Route: 048
     Dates: start: 2009
  3. NOVAMINSULFON [Concomitant]
     Active Substance: METAMIZOLE
     Indication: THROMBOPHLEBITIS
     Dosage: 1500 MILLIGRAM
     Route: 048
     Dates: start: 20130314
  4. MOVAIMAR [Concomitant]
     Indication: THROMBOPHLEBITIS
     Dosage: 3 MILLIGRAM
     Route: 048
     Dates: start: 20130419
  5. VERAPAMIL [Concomitant]
     Active Substance: VERAPAMIL HYDROCHLORIDE
     Indication: HYPERTENSION
     Dosage: 240 MILLIGRAM
     Route: 048
     Dates: start: 2009
  6. OLMESARTAN [Concomitant]
     Active Substance: OLMESARTAN
     Indication: HYPERTENSION
     Dosage: 20 MILLIGRAM
     Route: 048
     Dates: start: 2009
  7. HYDROCHLOROTHIAZID [Concomitant]
     Active Substance: HYDROCHLOROTHIAZIDE
     Indication: HYPERTENSION
     Dosage: 25 MILLIGRAM
     Route: 048
     Dates: start: 2009

REACTIONS (2)
  - Squamous cell carcinoma of the oral cavity [Recovered/Resolved with Sequelae]
  - Renal cell carcinoma [Recovered/Resolved]

NARRATIVE: CASE EVENT DATE: 20130405
